FAERS Safety Report 6442873-7 (Version None)
Quarter: 2009Q4

REPORT INFORMATION
  Report Type: 
  Country: None (occurrence: None)
  Receive Date: 20091117
  Receipt Date: 20091112
  Transmission Date: 20100525
  Serious: Yes (Other)
  Sender: FDA-Public Use
  Company Number: AU-ROXANE LABORATORIES, INC.-2009-RO-01167RO

PATIENT

DRUGS (1)
  1. LITHIUM CARBONATE [Suspect]
     Indication: DRUG DEPENDENCE
     Dosage: 1000 MG

REACTIONS (2)
  - HEADACHE [None]
  - MIGRAINE [None]
